FAERS Safety Report 7691746-0 (Version None)
Quarter: 2011Q3

REPORT INFORMATION
  Report Type: 
  Country: None (occurrence: None)
  Receive Date: 20110818
  Receipt Date: 20110810
  Transmission Date: 20111222
  Serious: Yes (Hospitalization)
  Sender: FDA-Public Use
  Company Number: JP-GLAXOSMITHKLINE-B0719825A

PATIENT
  Sex: Male
  Weight: 62 kg

DRUGS (8)
  1. ALKERAN [Suspect]
     Indication: STEM CELL TRANSPLANT
     Dosage: 95.97MGM2 PER DAY
     Route: 042
     Dates: start: 20100625, end: 20100626
  2. DIFLUCAN [Concomitant]
     Dosage: 200MG PER DAY
     Route: 048
     Dates: start: 20100622, end: 20100709
  3. SULFAMETHOXAZOLE [Concomitant]
     Dosage: 4IUAX PER DAY
     Route: 048
     Dates: start: 20100623, end: 20100626
  4. CIPROFLOXACIN HCL [Concomitant]
     Dosage: 600MG PER DAY
     Route: 048
     Dates: start: 20100623, end: 20100714
  5. RABEPRAZOLE SODIUM [Concomitant]
     Dosage: 10MG PER DAY
     Route: 048
     Dates: start: 20100622
  6. GRANISETRON [Concomitant]
     Dosage: 6MG PER DAY
     Route: 042
     Dates: start: 20100625, end: 20100626
  7. ALLOPURINOL [Concomitant]
     Dosage: 100MG PER DAY
     Route: 048
     Dates: start: 20100622, end: 20100707
  8. ZOVIRAX [Concomitant]
     Dosage: 1000MG PER DAY
     Route: 048
     Dates: start: 20100623

REACTIONS (1)
  - FEBRILE NEUTROPENIA [None]
